FAERS Safety Report 24040590 (Version 1)
Quarter: 2024Q3

REPORT INFORMATION
  Report Type: Spontaneous
  Country: US (occurrence: None)
  Receive Date: 20240701
  Receipt Date: 20240701
  Transmission Date: 20241017
  Serious: Yes (Hospitalization)
  Sender: Public
  Company Number: None

PATIENT
  Age: 62 Year
  Sex: Male
  Weight: 78.5 kg

DRUGS (12)
  1. INLYTA [Suspect]
     Active Substance: AXITINIB
     Indication: Renal cell carcinoma
     Dosage: 3 MG TWICE A DAY ORAL
     Route: 048
     Dates: start: 20240413
  2. AMLODIPINE [Concomitant]
  3. LEVOTHYROXINE [Concomitant]
  4. MIRTAZAPINE [Concomitant]
  5. OLANZAPINE [Concomitant]
  6. ONDANSETRON [Concomitant]
  7. OXYCODONE [Concomitant]
  8. phospha [Concomitant]
  9. PROCHLORPERAZINE [Concomitant]
  10. KETOROLAC [Concomitant]
  11. GABAPENTIN [Concomitant]
  12. DOCUSATE [Concomitant]

REACTIONS (2)
  - Disease progression [None]
  - Renal cell carcinoma [None]

NARRATIVE: CASE EVENT DATE: 20240621
